FAERS Safety Report 18299590 (Version 1)
Quarter: 2020Q3

REPORT INFORMATION
  Report Type: Spontaneous
  Country: US (occurrence: US)
  Receive Date: 20200921
  Receipt Date: 20200921
  Transmission Date: 20201103
  Serious: Yes (Other)
  Sender: FDA-Public Use
  Company Number: None

PATIENT
  Age: 23 Year
  Sex: Female
  Weight: 63 kg

DRUGS (2)
  1. CASTOR OIL EYE DROPS [Suspect]
     Active Substance: CASTOR OIL
     Indication: ASTIGMATISM
  2. CASTOR OIL EYE DROPS [Suspect]
     Active Substance: CASTOR OIL
     Indication: GLAUCOMA

REACTIONS (1)
  - Adverse reaction [None]

NARRATIVE: CASE EVENT DATE: 20200903
